FAERS Safety Report 9500530 (Version 2)
Quarter: 2013Q4

REPORT INFORMATION
  Report Type: Spontaneous
  Country: US (occurrence: US)
  Receive Date: 20130905
  Receipt Date: 20131017
  Transmission Date: 20140711
  Serious: Yes (Other)
  Sender: FDA-Public Use
  Company Number: US-ASTELLAS-2013US009244

PATIENT
  Age: 45 Year
  Sex: Female

DRUGS (3)
  1. VESICARE [Suspect]
     Indication: URINARY INCONTINENCE
     Dosage: 5 MG, UID/QD
     Route: 048
     Dates: start: 20130603, end: 20130621
  2. VESICARE [Suspect]
     Indication: MICTURITION URGENCY
  3. PROAIR                             /00139502/ [Concomitant]
     Indication: PRODUCT USED FOR UNKNOWN INDICATION
     Dosage: UNK
     Route: 065

REACTIONS (1)
  - Urinary incontinence [Unknown]
